FAERS Safety Report 18007153 (Version 2)
Quarter: 2023Q1

REPORT INFORMATION
  Report Type: Spontaneous
  Country: US (occurrence: US)
  Receive Date: 20200710
  Receipt Date: 20230217
  Transmission Date: 20230418
  Serious: No
  Sender: FDA-Public Use
  Company Number: US-AMGEN-USASP2020109404

PATIENT

DRUGS (3)
  1. PROLIA [Suspect]
     Active Substance: DENOSUMAB
     Indication: Spinal cord injury
     Dosage: 60 MILLIGRAM
     Route: 065
  2. VITAMIN D3 [Concomitant]
     Active Substance: CHOLECALCIFEROL
     Indication: Product used for unknown indication
     Dosage: 4000 INTERNATIONAL UNIT, QD, 30 DAYS
     Route: 065
  3. VITAMIN D3 [Concomitant]
     Active Substance: CHOLECALCIFEROL
     Dosage: 2000 INTERNATIONAL UNIT, QD
     Route: 065

REACTIONS (4)
  - Psoriasis [Unknown]
  - Rebound effect [Unknown]
  - Bone density decreased [Unknown]
  - Off label use [Unknown]
